FAERS Safety Report 10563438 (Version 2)
Quarter: 2014Q4

REPORT INFORMATION
  Report Type: Spontaneous
  Country: US (occurrence: US)
  Receive Date: 20141104
  Receipt Date: 20141104
  Transmission Date: 20150529
  Serious: Yes (Hospitalization, Other)
  Sender: FDA-Public Use
  Company Number: US-GLAXOSMITHKLINE-B0726558A

PATIENT
  Sex: Female

DRUGS (1)
  1. AVANDIA [Suspect]
     Active Substance: ROSIGLITAZONE MALEATE
     Indication: DIABETES MELLITUS
     Route: 048
     Dates: start: 200208, end: 200705

REACTIONS (12)
  - Transient ischaemic attack [Unknown]
  - Atrial fibrillation [Unknown]
  - Cardiac failure congestive [Unknown]
  - Cerebrovascular accident [Not Recovered/Not Resolved]
  - Migraine [Unknown]
  - Hemianopia homonymous [Unknown]
  - Cataract [Unknown]
  - Visual field defect [Unknown]
  - Arrhythmia [Unknown]
  - Myocardial infarction [Unknown]
  - Blindness [Unknown]
  - Stent placement [Unknown]
